FAERS Safety Report 6377490-0 (Version None)
Quarter: 2009Q3

REPORT INFORMATION
  Report Type: 
  Country: None (occurrence: None)
  Receive Date: 20090923
  Receipt Date: 20090923
  Transmission Date: 20100115
  Serious: Yes (Hospitalization)
  Sender: FDA-Public Use
  Company Number: None

PATIENT
  Age: 64 Year
  Sex: Male

DRUGS (12)
  1. DAPTOMYCIN [Suspect]
     Indication: BACTERAEMIA
     Dosage: 560 MG IV Q 24 HOURS
     Route: 042
     Dates: start: 20090526, end: 20090603
  2. ESOMEPRAZOLE [Concomitant]
  3. PILOCARPINE HYDROCHLORIDE [Concomitant]
  4. BUPROPION [Concomitant]
  5. CELECOXIB [Concomitant]
  6. IBUPROFEN [Concomitant]
  7. HYDROXYZINE [Concomitant]
  8. M.V.I. [Concomitant]
  9. TEMAZEPAM [Concomitant]
  10. DOCUSATE [Concomitant]
  11. ASPIRIN [Concomitant]
  12. HYDROMORPHONE [Concomitant]

REACTIONS (3)
  - DECREASED APPETITE [None]
  - FATIGUE [None]
  - PANCYTOPENIA [None]
